FAERS Safety Report 6332886-8 (Version None)
Quarter: 2009Q3

REPORT INFORMATION
  Report Type: 
  Country: None (occurrence: None)
  Receive Date: 20090828
  Receipt Date: 20090729
  Transmission Date: 20100115
  Serious: No
  Sender: FDA-Public Use
  Company Number: US-BAYER-200912908BCC

PATIENT
  Age: 69 Year
  Sex: Male
  Weight: 100 kg

DRUGS (10)
  1. ALEVE (CAPLET) [Suspect]
     Indication: BACK PAIN
     Dosage: TOTAL DAILY DOSE: 440 MG  UNIT DOSE: 220 MG
     Route: 048
     Dates: start: 20090729, end: 20090729
  2. SIMVASTATIN [Concomitant]
     Route: 065
  3. FLUOXETINE [Concomitant]
     Route: 065
  4. HYDROCHLOROTHIAZIDE [Concomitant]
     Route: 065
  5. LISINOPRIL [Concomitant]
     Route: 065
  6. TERAZOSIN HCL [Concomitant]
     Route: 065
  7. METPHORMINE [Concomitant]
     Route: 065
  8. METOPROLOL [Concomitant]
     Route: 065
  9. PRILOSEC [Concomitant]
     Route: 065
  10. GINKO BELOBA SUPPLEMENT [Concomitant]
     Route: 065

REACTIONS (1)
  - BLOOD GLUCOSE INCREASED [None]
